FAERS Safety Report 18260440 (Version 1)
Quarter: 2020Q3

REPORT INFORMATION
  Report Type: Spontaneous
  Country: GB (occurrence: GB)
  Receive Date: 20200914
  Receipt Date: 20200914
  Transmission Date: 20201103
  Serious: Yes (Other)
  Sender: FDA-Public Use
  Company Number: GB-TEVA-2020-GB-1826025

PATIENT
  Age: 39 Year
  Sex: Female
  Weight: 53.97 kg

DRUGS (4)
  1. AMITRIPTYLINE [Concomitant]
     Active Substance: AMITRIPTYLINE
  2. FOLIC ACID. [Suspect]
     Active Substance: FOLIC ACID
     Indication: NAIL PSORIASIS
     Dosage: 5 MG
     Route: 048
     Dates: start: 20200302
  3. METHOTREXATE. [Concomitant]
     Active Substance: METHOTREXATE
  4. GABAPENTIN. [Concomitant]
     Active Substance: GABAPENTIN

REACTIONS (3)
  - Melaena [Recovered/Resolved]
  - Faeces discoloured [Recovered/Resolved]
  - Diarrhoea [Recovered/Resolved]

NARRATIVE: CASE EVENT DATE: 20200302
